FAERS Safety Report 5954846-9 (Version None)
Quarter: 2008Q4

REPORT INFORMATION
  Report Type: 
  Country: None (occurrence: None)
  Receive Date: 20081117
  Receipt Date: 20081110
  Transmission Date: 20090506
  Serious: Yes (Death, Life-Threatening)
  Sender: FDA-Public Use
  Company Number: JP-ASTRAZENECA-2008AP07804

PATIENT
  Age: 14185 Day
  Sex: Female

DRUGS (9)
  1. SEROQUEL [Suspect]
     Indication: SCHIZOPHRENIA
     Route: 048
     Dates: start: 20080308, end: 20080924
  2. SEROQUEL [Suspect]
     Route: 048
     Dates: start: 20081001
  3. ANAFRANIL [Suspect]
     Route: 048
     Dates: start: 20081001
  4. BENZALIN [Suspect]
     Route: 048
     Dates: start: 20081001
  5. SOLANAX [Suspect]
     Route: 048
     Dates: start: 20081001
  6. RISUMIC [Suspect]
     Route: 048
     Dates: start: 20081001
  7. FLUNITRAZEPAM [Suspect]
     Route: 048
     Dates: start: 20081001
  8. SENNOSIDE [Concomitant]
     Indication: CONSTIPATION
     Route: 048
     Dates: start: 20080308, end: 20080924
  9. LAXOBERON [Concomitant]
     Indication: CONSTIPATION
     Route: 048
     Dates: start: 20080308, end: 20080924

REACTIONS (4)
  - ARRHYTHMIA [None]
  - CARDIOTOXICITY [None]
  - OVERDOSE [None]
  - SUICIDE ATTEMPT [None]
